FAERS Safety Report 26195620 (Version 1)
Quarter: 2025Q4

REPORT INFORMATION
  Report Type: Spontaneous
  Country: EU (occurrence: EU)
  Receive Date: 20251224
  Receipt Date: 20251224
  Transmission Date: 20260118
  Serious: Yes (Hospitalization)
  Sender: SOMERSET THERAPEUTICS, LLC
  Company Number: EU-MIT-25-75-NL-2025-SOM-LIT-00539

PATIENT
  Age: 42 Year
  Sex: Female

DRUGS (4)
  1. BUPIVACAINE HYDROCHLORIDE [Suspect]
     Active Substance: BUPIVACAINE HYDROCHLORIDE
     Indication: Procedural pain
     Route: 008
  2. SUFENTANIL [Concomitant]
     Active Substance: SUFENTANIL
     Dosage: 5 MCG PER HOUR
     Route: 065
  3. ACETAMINOPHEN [Concomitant]
     Active Substance: ACETAMINOPHEN
     Route: 048
  4. PREGABALIN [Concomitant]
     Active Substance: PREGABALIN
     Route: 065

REACTIONS (1)
  - Pleural effusion [Recovered/Resolved]
